FAERS Safety Report 5827489-5 (Version None)
Quarter: 2008Q3

REPORT INFORMATION
  Report Type: 
  Country: None (occurrence: None)
  Receive Date: 20080730
  Receipt Date: 20080721
  Transmission Date: 20090109
  Serious: Yes (Hospitalization)
  Sender: FDA-Public Use
  Company Number: FR-ASTRAZENECA-2008CG01092

PATIENT
  Age: 78 Year
  Sex: Male

DRUGS (8)
  1. NEXIUM [Suspect]
     Indication: DYSPEPSIA
     Route: 048
     Dates: start: 20071223, end: 20080202
  2. LASIX [Suspect]
     Indication: RENAL FAILURE
     Route: 042
     Dates: start: 20071224, end: 20080201
  3. DALACINE [Concomitant]
     Indication: DEVICE RELATED INFECTION
     Dates: start: 20080104, end: 20080202
  4. CLAFORAN [Concomitant]
     Indication: DEVICE RELATED INFECTION
     Route: 042
     Dates: start: 20071227, end: 20080202
  5. RIFADIN [Concomitant]
     Indication: DEVICE RELATED INFECTION
     Route: 042
     Dates: start: 20080111, end: 20080202
  6. CALCIPARINE [Concomitant]
     Indication: THROMBOSIS PROPHYLAXIS
     Route: 058
     Dates: start: 20071231, end: 20080201
  7. GENTAMICIN [Concomitant]
     Indication: DEVICE RELATED INFECTION
     Route: 014
     Dates: start: 20071231
  8. TRAMADOL HCL [Concomitant]
     Indication: PAIN
     Route: 048
     Dates: start: 20071223, end: 20080202

REACTIONS (1)
  - RENAL FAILURE ACUTE [None]
